FAERS Safety Report 5568679-9 (Version None)
Quarter: 2007Q4

REPORT INFORMATION
  Report Type: 
  Country: None (occurrence: None)
  Receive Date: 20071220
  Receipt Date: 20071212
  Transmission Date: 20080405
  Serious: Yes (Hospitalization)
  Sender: FDA-Public Use
  Company Number: JP-ASTRAZENECA-2007AP07917

PATIENT
  Age: 72 Year
  Sex: Female

DRUGS (3)
  1. CRESTOR [Suspect]
     Indication: HYPERCHOLESTEROLAEMIA
     Route: 048
     Dates: start: 20070614, end: 20071123
  2. WARFARIN SODIUM [Interacting]
     Indication: CEREBRAL INFARCTION
     Dosage: FREQUENCY UNKNOWN
     Route: 048
     Dates: start: 20070808, end: 20071030
  3. WARFARIN SODIUM [Interacting]
     Dosage: FREQUENCY UNKNOWN
     Route: 048
     Dates: start: 20071031, end: 20071130

REACTIONS (2)
  - INTERNATIONAL NORMALISED RATIO FLUCTUATION [None]
  - PNEUMONIA [None]
